FAERS Safety Report 19086482 (Version 1)
Quarter: 2021Q2

REPORT INFORMATION
  Report Type: Spontaneous
  Country: US (occurrence: US)
  Receive Date: 20210401
  Receipt Date: 20210401
  Transmission Date: 20210717
  Serious: Yes (Hospitalization, Disabling, Other)
  Sender: FDA-Public Use
  Company Number: None

PATIENT
  Age: 37 Year
  Sex: Female
  Weight: 155.7 kg

DRUGS (4)
  1. MORPHINE [Suspect]
     Active Substance: MORPHINE
     Indication: CHEST PAIN
     Dosage: ?          QUANTITY:1 INJECTION(S);?
     Route: 042
     Dates: start: 20210331, end: 20210331
  2. TYLENOL [Concomitant]
     Active Substance: ACETAMINOPHEN
  3. BIPAP [Concomitant]
     Active Substance: DEVICE
  4. PEPCID [Concomitant]
     Active Substance: FAMOTIDINE

REACTIONS (10)
  - COVID-19 [None]
  - Hyperventilation [None]
  - Mitral valve incompetence [None]
  - Headache [None]
  - Gait disturbance [None]
  - Pain [None]
  - Hunger [None]
  - Loss of personal independence in daily activities [None]
  - Fatigue [None]
  - Sleep apnoea syndrome [None]

NARRATIVE: CASE EVENT DATE: 20210331
